FAERS Safety Report 8309801-0 (Version None)
Quarter: 2012Q2

REPORT INFORMATION
  Report Type: 
  Country: None (occurrence: None)
  Receive Date: 20120423
  Receipt Date: 20120412
  Transmission Date: 20120825
  Serious: Yes (Hospitalization)
  Sender: FDA-Public Use
  Company Number: AUR-APL-2012-01374

PATIENT
  Age: 63 Year
  Sex: Female

DRUGS (2)
  1. CLARITHROMYCIN [Suspect]
     Indication: PRODUCT USED FOR UNKNOWN INDICATION
  2. PIPERACILLIN AND TAZOBACTAM [Suspect]
     Indication: LUNG INFECTION PSEUDOMONAL
     Dosage: (4.5 GM, 6 HR), INTRAVENOUS
     Route: 042
     Dates: start: 20120127, end: 20120201

REACTIONS (1)
  - THERAPEUTIC PRODUCT INEFFECTIVE [None]
